FAERS Safety Report 19117634 (Version 1)
Quarter: 2021Q2

REPORT INFORMATION
  Report Type: Spontaneous
  Country: PL (occurrence: PL)
  Receive Date: 20210409
  Receipt Date: 20210409
  Transmission Date: 20210717
  Serious: Yes (Hospitalization)
  Sender: FDA-Public Use
  Company Number: PL-TEVA-2021-PL-1899287

PATIENT
  Age: 64 Year
  Sex: Female
  Weight: 60 kg

DRUGS (2)
  1. NAVELBINE [Suspect]
     Active Substance: VINORELBINE TARTRATE
     Dosage: 42.25 MG,INDICATION FOR USE: ICD?10: C34.8: MALIGNANT NEOPLASM OF BRONCHUS AND LUNG / OVERLAPPING LE
     Route: 042
     Dates: start: 20200312, end: 20200312
  2. CARBOPLATIN. [Suspect]
     Active Substance: CARBOPLATIN
     Dosage: 374.26 MG,INDICATION FOR USE: ICD?10: C34.8: MALIGNANT NEOPLASM OF BRONCHUS AND LUNG / OVERLAPPING L
     Route: 042
     Dates: start: 20200312, end: 20200312

REACTIONS (3)
  - White blood cell count decreased [Recovered/Resolved]
  - Neutrophil count decreased [Recovered/Resolved]
  - Haemoglobin decreased [Recovered/Resolved]

NARRATIVE: CASE EVENT DATE: 20200313
